FAERS Safety Report 4770066-8 (Version None)
Quarter: 2005Q3

REPORT INFORMATION
  Report Type: 
  Country: None (occurrence: None)
  Receive Date: 20050915
  Receipt Date: 20050112
  Transmission Date: 20060218
  Serious: No
  Sender: FDA-Public Use
  Company Number: US-GLAXOSMITHKLINE-A0540400A

PATIENT
  Age: 67 Year
  Sex: Female

DRUGS (3)
  1. ABREVA [Suspect]
     Indication: LACERATION
     Dates: start: 20050109, end: 20050112
  2. CAMPHO-PHENIQUE [Concomitant]
  3. NEOSPORIN [Concomitant]

REACTIONS (3)
  - APPLICATION SITE DRYNESS [None]
  - APPLICATION SITE REACTION [None]
  - DRUG ADMINISTRATION ERROR [None]
